FAERS Safety Report 18158416 (Version 1)
Quarter: 2020Q3

REPORT INFORMATION
  Report Type: Spontaneous
  Country: DE (occurrence: DE)
  Receive Date: 20200817
  Receipt Date: 20200817
  Transmission Date: 20201103
  Serious: Yes (Life-Threatening, Hospitalization)
  Sender: FDA-Public Use
  Company Number: DE-PFIZER INC-2020314832

PATIENT
  Age: 89 Year
  Sex: Female

DRUGS (8)
  1. SERTRALINE HCL [Suspect]
     Active Substance: SERTRALINE HYDROCHLORIDE
     Dosage: 100 MG, 1X/DAY (1?0?0?0)
  2. METAMIZOLE [Concomitant]
     Active Substance: METAMIZOLE
     Dosage: 500 MG, AS NEEDED
  3. B12 ANKERMANN [Concomitant]
     Dosage: 1 MG 4X/WEEK  IN THE MORNING
  4. TORASEMID [Concomitant]
     Active Substance: TORSEMIDE
     Dosage: 10 MG, 1X/DAY (1?0?0?0)
  5. EDOXABAN [Suspect]
     Active Substance: EDOXABAN TOSYLATE
     Dosage: 30 MG, 1X/DAY   (1?0?0?0)
  6. FRESUBIN CREME [Concomitant]
     Dosage: IN THE MORNING
  7. PANTOPRAZOLE [Concomitant]
     Active Substance: PANTOPRAZOLE
     Dosage: 40 MG, 1X/DAY (1?0?0?0
  8. LEVOTHYROXINE SODIUM. [Concomitant]
     Active Substance: LEVOTHYROXINE SODIUM
     Dosage: 100 UG, 1X/DAY (1?0?0?0)

REACTIONS (5)
  - General physical health deterioration [Unknown]
  - Atrial fibrillation [Unknown]
  - Melaena [Unknown]
  - Haematemesis [Unknown]
  - Tachycardia [Unknown]
